FAERS Safety Report 21009386 (Version 1)
Quarter: 2022Q2

REPORT INFORMATION
  Report Type: Spontaneous
  Country: US (occurrence: US)
  Receive Date: 20220627
  Receipt Date: 20220627
  Transmission Date: 20220721
  Serious: Yes (Hospitalization, Other)
  Sender: FDA-Public Use
  Company Number: US-GLENMARK PHARMACEUTICALS-2022GMK073080

PATIENT

DRUGS (1)
  1. ZONISAMIDE [Suspect]
     Active Substance: ZONISAMIDE
     Indication: Seizure
     Dosage: 200 MILLIGRAM, BID; IT WAS MIXED WITH APPLE SAUCE FOR THE TREATMENT OF SEIZURES
     Route: 048

REACTIONS (5)
  - Food refusal [Recovered/Resolved]
  - Loss of personal independence in daily activities [Recovered/Resolved]
  - Seizure [Recovered/Resolved]
  - Recalled product administered [Unknown]
  - Wrong technique in product usage process [Unknown]
